FAERS Safety Report 23844140 (Version 1)
Quarter: 2024Q2

REPORT INFORMATION
  Report Type: Spontaneous
  Country: US (occurrence: None)
  Receive Date: 20240510
  Receipt Date: 20240510
  Transmission Date: 20240715
  Serious: No
  Sender: FDA-Public Use
  Company Number: 2024A108737

PATIENT
  Sex: Male

DRUGS (9)
  1. TEZEPELUMAB [Suspect]
     Active Substance: TEZEPELUMAB
     Indication: Asthma prophylaxis
     Route: 058
  2. METAMUCIL FIIBER [Concomitant]
  3. ADMELOG [Concomitant]
     Active Substance: INSULIN LISPRO
  4. BASAGLAR TEMPO PEN [Concomitant]
     Active Substance: INSULIN GLARGINE
  5. PREDNISONE [Concomitant]
     Active Substance: PREDNISONE
  6. LOSARTAN POTASSIUM [Concomitant]
     Active Substance: LOSARTAN POTASSIUM
  7. IBUPROFEN [Concomitant]
     Active Substance: IBUPROFEN
  8. ASPIRIN [Concomitant]
     Active Substance: ASPIRIN
  9. BENADRYL ALLERGY [Concomitant]
     Active Substance: DIPHENHYDRAMINE HYDROCHLORIDE

REACTIONS (2)
  - Pain [Unknown]
  - Inappropriate schedule of product administration [Unknown]
